FAERS Safety Report 5312551-6 (Version None)
Quarter: 2007Q2

REPORT INFORMATION
  Report Type: 
  Country: None (occurrence: None)
  Receive Date: 20070430
  Receipt Date: 20070131
  Transmission Date: 20071010
  Serious: No
  Sender: FDA-Public Use
  Company Number: 2006UW28650

PATIENT
  Age: 81 Year
  Sex: Female
  Weight: 70.5 kg

DRUGS (4)
  1. NEXIUM [Suspect]
     Route: 048
  2. PRILOSEC OTC [Suspect]
     Indication: HIATUS HERNIA
     Dosage: 1 TABLET PER DAY FOR 4 DAYS
     Route: 048
     Dates: start: 20061222, end: 20061225
  3. PRILOSEC OTC [Suspect]
     Indication: GASTRITIS
     Dosage: 1 TABLET PER DAY FOR 4 DAYS
     Route: 048
     Dates: start: 20061222, end: 20061225
  4. PAXIL [Concomitant]

REACTIONS (2)
  - SNEEZING [None]
  - WEIGHT DECREASED [None]
